FAERS Safety Report 9257794 (Version 1)
Quarter: 2013Q2

REPORT INFORMATION
  Report Type: Report from Study
  Country: US (occurrence: US)
  Receive Date: 20130425
  Receipt Date: 20130425
  Transmission Date: 20140414
  Serious: Yes (Other)
  Sender: FDA-Public Use
  Company Number: US-RB-028562-11

PATIENT
  Age: 50 Year
  Sex: Female

DRUGS (3)
  1. SUBOXONE FILM [Suspect]
     Indication: ARTHRALGIA
     Dosage: SUBOXONE FILM
     Route: 060
     Dates: start: 201106
  2. SUBOXONE FILM [Suspect]
     Indication: BACK PAIN
     Dosage: SUBOXONE FILM
     Route: 060
     Dates: start: 201106
  3. SUBOXONE FILM [Suspect]
     Indication: ARTHRALGIA
     Dosage: SUBOXONE FILM
     Route: 060
     Dates: start: 201106

REACTIONS (5)
  - Off label use [Recovered/Resolved]
  - Arthralgia [Recovered/Resolved]
  - Condition aggravated [Recovered/Resolved]
  - Knee arthroplasty [Recovered/Resolved]
  - Knee arthroplasty [Recovered/Resolved]
